FAERS Safety Report 5796852-3 (Version None)
Quarter: 2008Q3

REPORT INFORMATION
  Report Type: 
  Country: None (occurrence: None)
  Receive Date: 20080701
  Receipt Date: 20080623
  Transmission Date: 20090109
  Serious: Yes (Other)
  Sender: FDA-Public Use
  Company Number: US-AMGEN-KDL268128

PATIENT
  Sex: Female

DRUGS (2)
  1. ENBREL [Suspect]
     Indication: PSORIATIC ARTHROPATHY
     Route: 058
     Dates: start: 20060410
  2. ENBREL [Suspect]
     Indication: PSORIASIS

REACTIONS (3)
  - INTESTINAL OBSTRUCTION [None]
  - UMBILICAL HERNIA [None]
  - VOMITING [None]
